FAERS Safety Report 23365013 (Version 1)
Quarter: 2024Q1

REPORT INFORMATION
  Report Type: Spontaneous
  Country: US (occurrence: US)
  Receive Date: 20240104
  Receipt Date: 20240104
  Transmission Date: 20240410
  Serious: No
  Sender: FDA-Public Use
  Company Number: US-HETERO-HET2023US03745

PATIENT
  Sex: Female
  Weight: 69.3 kg

DRUGS (1)
  1. MONTELUKAST [Suspect]
     Active Substance: MONTELUKAST SODIUM
     Indication: Asthma
     Dosage: UNK, QD
     Route: 065
     Dates: start: 202305, end: 20230618

REACTIONS (2)
  - Colour blindness [Not Recovered/Not Resolved]
  - Eye pain [Not Recovered/Not Resolved]
